FAERS Safety Report 5376973-X (Version None)
Quarter: 2007Q2

REPORT INFORMATION
  Report Type: 
  Country: None (occurrence: None)
  Receive Date: 20070628
  Receipt Date: 20070628
  Transmission Date: 20071010
  Serious: Yes (Life-Threatening, Hospitalization)
  Sender: FDA-Public Use
  Company Number: None

PATIENT
  Sex: Male
  Weight: 119 kg

DRUGS (1)
  1. PROPOFOL [Suspect]
     Indication: SEDATION
     Dosage: CONTINUOUS IV DRIP
     Route: 041
     Dates: start: 20070605, end: 20070605

REACTIONS (6)
  - AUTONOMIC NERVOUS SYSTEM IMBALANCE [None]
  - DRUG INEFFECTIVE [None]
  - HYPERTHERMIA [None]
  - HYPOTENSION [None]
  - MUSCULAR WEAKNESS [None]
  - RESPIRATORY FAILURE [None]
